FAERS Safety Report 20640787 (Version 2)
Quarter: 2022Q2

REPORT INFORMATION
  Report Type: Spontaneous
  Country: LU (occurrence: LU)
  Receive Date: 20220327
  Receipt Date: 20220602
  Transmission Date: 20220720
  Serious: Yes (Hospitalization, Other)
  Sender: FDA-Public Use
  Company Number: LU-BRISTOL-MYERS SQUIBB COMPANY-2022-010166

PATIENT
  Age: 37 Year
  Sex: Female

DRUGS (2)
  1. IPILIMUMAB [Suspect]
     Active Substance: IPILIMUMAB
     Indication: Metastatic malignant melanoma
     Dosage: (FIRST DOSE)
     Route: 065
     Dates: start: 20211116, end: 20211201
  2. NIVOLUMAB [Suspect]
     Active Substance: NIVOLUMAB
     Indication: Metastatic malignant melanoma
     Dosage: DOSE : UNAVAILABLE;     FREQ : UNAVAILABLE  (FIRST DOSE)
     Route: 065

REACTIONS (2)
  - Hepatitis [Recovered/Resolved]
  - Hepatitis fulminant [Unknown]

NARRATIVE: CASE EVENT DATE: 20211116
